FAERS Safety Report 7569570-9 (Version None)
Quarter: 2011Q2

REPORT INFORMATION
  Report Type: 
  Country: None (occurrence: None)
  Receive Date: 20110622
  Receipt Date: 20110622
  Transmission Date: 20111010
  Serious: Yes (Other)
  Sender: FDA-Public Use
  Company Number: None

PATIENT
  Age: 43 Year
  Sex: Female
  Weight: 81.6475 kg

DRUGS (1)
  1. CIPROFLOXACIN [Suspect]
     Indication: URINARY TRACT INFECTION
     Dosage: 1 TABLET BY MOUTH 2X DAY PO
     Route: 048
     Dates: start: 20110225, end: 20110302

REACTIONS (11)
  - HEADACHE [None]
  - DEPRESSION [None]
  - INSOMNIA [None]
  - FEELING ABNORMAL [None]
  - HAIR TEXTURE ABNORMAL [None]
  - ANXIETY [None]
  - STRESS [None]
  - TREMOR [None]
  - DRY SKIN [None]
  - DYSGEUSIA [None]
  - DRY EYE [None]
